FAERS Safety Report 9440404 (Version 1)
Quarter: 2013Q3

REPORT INFORMATION
  Report Type: Spontaneous
  Country: US (occurrence: US)
  Receive Date: 20130805
  Receipt Date: 20130805
  Transmission Date: 20140515
  Serious: Yes (Other)
  Sender: FDA-Public Use
  Company Number: US-BAYER-2013-092271

PATIENT
  Age: 53 Year
  Sex: Female
  Weight: 93 kg

DRUGS (10)
  1. BETASERON [Suspect]
     Dosage: 250 ?G, QOD
     Route: 058
  2. PRAVASTATIN [Concomitant]
     Dosage: 10 MG, UNK
  3. GLUCOSAMINE [Concomitant]
     Dosage: 1000 MG, UNK
  4. OMEPRAZOLE [Concomitant]
     Dosage: 10 MG, UNK
  5. GABAPENTIN [Concomitant]
     Dosage: 400 MG, UNK
  6. HYDROCODONE/CHLORPHENAMINE/PHENYLEPHRINE [Concomitant]
  7. VITAMIN B12 [Concomitant]
     Dosage: 500 ?G, UNK
  8. AMLODIPINE W/BENAZEPRIL [Concomitant]
     Dosage: 5-10 MG
  9. TOPAMAX [Concomitant]
     Dosage: 25 MG, UNK
  10. VITAMIN D [Concomitant]
     Dosage: 400 U, UNK

REACTIONS (11)
  - Fall [Recovered/Resolved]
  - Ligament sprain [Recovering/Resolving]
  - Joint swelling [Recovering/Resolving]
  - Fall [Recovered/Resolved]
  - Haematoma [Recovering/Resolving]
  - Contusion [Recovering/Resolving]
  - Blindness transient [Unknown]
  - Oscillopsia [Unknown]
  - Dizziness [Unknown]
  - Neuropathy peripheral [Unknown]
  - Neuralgia [Unknown]
